FAERS Safety Report 11875956 (Version 1)
Quarter: 2015Q4

REPORT INFORMATION
  Report Type: Spontaneous
  Country: JP (occurrence: JP)
  Receive Date: 20151229
  Receipt Date: 20151229
  Transmission Date: 20160305
  Serious: Yes (Hospitalization)
  Sender: FDA-Public Use
  Company Number: JP-FRESENIUS KABI-FK201506893

PATIENT
  Age: 73 Year
  Sex: Male

DRUGS (6)
  1. LEUCOVORIN. [Concomitant]
     Active Substance: LEUCOVORIN
     Indication: COLON CANCER RECURRENT
  2. OXALIPLATIN (MANUFACTURER UNKNOWN) [Suspect]
     Active Substance: OXALIPLATIN
     Indication: COLON CANCER RECURRENT
     Route: 065
  3. IRINOTECAN [Concomitant]
     Active Substance: IRINOTECAN
     Indication: COLON CANCER RECURRENT
  4. FLUOROURACIL. [Concomitant]
     Active Substance: FLUOROURACIL
     Indication: COLON CANCER RECURRENT
  5. CAPECITABINE. [Concomitant]
     Active Substance: CAPECITABINE
     Indication: COLON CANCER RECURRENT
  6. BEVACIZUMAB [Suspect]
     Active Substance: BEVACIZUMAB
     Indication: COLON CANCER RECURRENT

REACTIONS (1)
  - Gastrointestinal perforation [Recovered/Resolved]
